FAERS Safety Report 6703949-X (Version None)
Quarter: 2010Q2

REPORT INFORMATION
  Report Type: 
  Country: None (occurrence: None)
  Receive Date: 20100430
  Receipt Date: 20100422
  Transmission Date: 20101027
  Serious: Yes (Life-Threatening)
  Sender: FDA-Public Use
  Company Number: FR-PFIZER INC-2010050828

PATIENT
  Age: 21 Year
  Sex: Male

DRUGS (8)
  1. AMLOR [Suspect]
     Dosage: 5 MG, 2X/DAY
     Route: 048
  2. MINOCYCLINE [Suspect]
     Dosage: 100 MG, 2X/DAY
     Route: 048
     Dates: start: 20091201, end: 20100408
  3. RIFADIN [Suspect]
     Dosage: 600 MG, 2X/DAY
     Route: 048
     Dates: start: 20091201
  4. MYFORTIC [Suspect]
     Dosage: 540 MG, 2X/DAY
     Route: 048
     Dates: start: 20091024
  5. PROGRAF [Suspect]
     Dosage: 10 MG, 2X/DAY
     Route: 048
     Dates: start: 20090701, end: 20100408
  6. MOPRAL [Suspect]
     Dosage: 20 MG, 1X/DAY
     Route: 048
     Dates: end: 20100408
  7. SECTRAL [Suspect]
     Route: 048
  8. FUNGIZONE [Concomitant]
     Dosage: 1 G, 2X/DAY
     Route: 048

REACTIONS (1)
  - PANCREATITIS NECROTISING [None]
